FAERS Safety Report 11825783 (Version 1)
Quarter: 2015Q4

REPORT INFORMATION
  Report Type: Spontaneous
  Country: US (occurrence: None)
  Receive Date: 20151209
  Receipt Date: 20151209
  Transmission Date: 20160305
  Serious: Yes (Other)
  Sender: FDA-Public Use
  Company Number: None

PATIENT
  Age: 21 Year
  Sex: Female

DRUGS (2)
  1. TIZANIDINE. [Suspect]
     Active Substance: TIZANIDINE
     Indication: MUSCLE DISORDER
     Route: 048
     Dates: start: 20151124, end: 20151207
  2. TIZANIDINE. [Suspect]
     Active Substance: TIZANIDINE
     Indication: NERVOUS SYSTEM DISORDER
     Route: 048
     Dates: start: 20151124, end: 20151207

REACTIONS (4)
  - Muscle tightness [None]
  - Product quality issue [None]
  - Drug ineffective [None]
  - Insomnia [None]

NARRATIVE: CASE EVENT DATE: 20151123
